FAERS Safety Report 4294680-1 (Version None)
Quarter: 2004Q1

REPORT INFORMATION
  Report Type: 
  Country: None (occurrence: None)
  Receive Date: 20040213
  Receipt Date: 20040203
  Transmission Date: 20041129
  Serious: Yes (Other)
  Sender: FDA-Public Use
  Company Number: PHBS2004GR01835

PATIENT
  Age: 38 Year
  Sex: Female

DRUGS (2)
  1. IMATINIB [Suspect]
     Indication: ACUTE MYELOID LEUKAEMIA
     Dosage: 300 MG/D
     Route: 065
  2. IMATINIB [Suspect]
     Dosage: 600 MG/D
     Route: 065

REACTIONS (1)
  - BRONCHOPULMONARY ASPERGILLOSIS [None]
